FAERS Safety Report 9444386 (Version 1)
Quarter: 2013Q3

REPORT INFORMATION
  Report Type: Report from Study
  Country: CA (occurrence: CA)
  Receive Date: 20130807
  Receipt Date: 20130807
  Transmission Date: 20140515
  Serious: Yes (Other)
  Sender: FDA-Public Use
  Company Number: CA-JNJFOC-20130719111

PATIENT
  Sex: Female
  Weight: 57 kg

DRUGS (5)
  1. REMICADE [Suspect]
     Indication: CROHN^S DISEASE
     Route: 042
     Dates: start: 201304
  2. IMURAN [Concomitant]
     Route: 065
  3. ENTOCORT [Concomitant]
     Route: 065
  4. CELEBREX [Concomitant]
     Route: 065
  5. DOXYCYCLINE [Concomitant]
     Route: 065

REACTIONS (1)
  - Meniscus injury [Unknown]
